FAERS Safety Report 9124225 (Version 4)
Quarter: 2013Q2

REPORT INFORMATION
  Report Type: Spontaneous
  Country: CA (occurrence: CA)
  Receive Date: 20130227
  Receipt Date: 20130524
  Transmission Date: 20140414
  Serious: Yes (Other)
  Sender: FDA-Public Use
  Company Number: CA-BAYER-2013-024332

PATIENT
  Sex: Female

DRUGS (3)
  1. BETASERON [Suspect]
     Indication: RELAPSING-REMITTING MULTIPLE SCLEROSIS
     Dosage: 0.5 MG, DIE
     Route: 058
     Dates: start: 2007, end: 2011
  2. BETASERON [Suspect]
     Indication: RELAPSING-REMITTING MULTIPLE SCLEROSIS
     Dosage: 0.5 MG, DIE
  3. CORTICOSTEROIDS [Suspect]

REACTIONS (5)
  - Scotoma [None]
  - Treatment failure [None]
  - Multiple sclerosis [None]
  - Full blood count abnormal [None]
  - Electrocardiogram abnormal [None]
